FAERS Safety Report 11282909 (Version 1)
Quarter: 2015Q3

REPORT INFORMATION
  Report Type: Spontaneous
  Country: FR (occurrence: FR)
  Receive Date: 20150720
  Receipt Date: 20150720
  Transmission Date: 20151125
  Serious: Yes (Death, Other)
  Sender: FDA-Public Use
  Company Number: FR-JNJFOC-20150706931

PATIENT

DRUGS (5)
  1. BLEOMYCIN [Suspect]
     Active Substance: BLEOMYCIN SULFATE
     Indication: HODGKIN^S DISEASE
     Dosage: EVERY 14 DAYS
     Route: 065
     Dates: start: 1997, end: 2012
  2. VINBLASTINE [Suspect]
     Active Substance: VINBLASTINE
     Indication: HODGKIN^S DISEASE
     Dosage: EVERY 14 DAYS
     Route: 065
     Dates: start: 1997, end: 2012
  3. DOXORUBICIN HYDROCHLORIDE. [Suspect]
     Active Substance: DOXORUBICIN HYDROCHLORIDE
     Indication: HODGKIN^S DISEASE
     Dosage: EVERY 14 DAYS
     Route: 042
     Dates: start: 1997, end: 2012
  4. GRANULOCYTE COLONY STIMULATING FACTOR [Concomitant]
     Active Substance: GRANULOCYTE COLONY-STIMULATING FACTOR NOS
     Route: 065
  5. DACARBAZINE. [Suspect]
     Active Substance: DACARBAZINE
     Indication: HODGKIN^S DISEASE
     Dosage: EVERY 14 DAYS
     Route: 065
     Dates: start: 1997, end: 2012

REACTIONS (12)
  - Infection [Fatal]
  - Hypersensitivity [Unknown]
  - Thrombocytopenia [Unknown]
  - Non-Hodgkin^s lymphoma [Fatal]
  - Myelodysplastic syndrome [Fatal]
  - Toxicity to various agents [Fatal]
  - Neutropenia [Unknown]
  - Cardiotoxicity [Unknown]
  - Hepatic neoplasm [Unknown]
  - Hepatotoxicity [Unknown]
  - Central nervous system mass [Unknown]
  - Neoplasm [Unknown]
